FAERS Safety Report 11660675 (Version 1)
Quarter: 2015Q4

REPORT INFORMATION
  Report Type: Spontaneous
  Country: US (occurrence: US)
  Receive Date: 20151026
  Receipt Date: 20151026
  Transmission Date: 20160304
  Serious: No
  Sender: FDA-Public Use
  Company Number: US-MEDA-2011060063

PATIENT
  Age: 70 Year
  Sex: Female
  Weight: 56 kg

DRUGS (5)
  1. LOTREL [Concomitant]
     Active Substance: AMLODIPINE BESYLATE\BENAZEPRIL HYDROCHLORIDE
  2. OMNARIS [Suspect]
     Active Substance: CICLESONIDE
     Indication: MULTIPLE ALLERGIES
     Route: 045
     Dates: start: 201104, end: 201105
  3. ASTEPRO [Suspect]
     Active Substance: AZELASTINE HYDROCHLORIDE
     Dates: start: 201104, end: 201105
  4. OMNARIS [Suspect]
     Active Substance: CICLESONIDE
     Indication: MULTIPLE ALLERGIES
     Route: 045
     Dates: start: 20110504
  5. VITAMIN D [Concomitant]
     Active Substance: CHOLECALCIFEROL

REACTIONS (2)
  - Chest discomfort [Recovered/Resolved]
  - Dyspnoea [Recovered/Resolved]

NARRATIVE: CASE EVENT DATE: 2011
